FAERS Safety Report 16097218 (Version 1)
Quarter: 2019Q1

REPORT INFORMATION
  Report Type: Report from Study
  Country: CO (occurrence: CO)
  Receive Date: 20190320
  Receipt Date: 20190320
  Transmission Date: 20190418
  Serious: Yes (Other)
  Sender: FDA-Public Use
  Company Number: PHHY2017CO098486

PATIENT
  Age: 82 Year
  Sex: Male
  Weight: 84 kg

DRUGS (3)
  1. ALLOPURINOL. [Concomitant]
     Active Substance: ALLOPURINOL
     Indication: PRODUCT USED FOR UNKNOWN INDICATION
     Route: 065
  2. TASIGNA [Suspect]
     Active Substance: NILOTINIB
     Indication: CHRONIC MYELOID LEUKAEMIA
     Dosage: 800 MG, QD
     Route: 048
     Dates: start: 20170101
  3. TASIGNA [Suspect]
     Active Substance: NILOTINIB
     Dosage: 2 DF BID (2 CAPSULES EVERY 12 HOURS)
     Route: 048
     Dates: start: 20170614

REACTIONS (10)
  - Pruritus generalised [Unknown]
  - Inappropriate schedule of product administration [Unknown]
  - Decreased appetite [Unknown]
  - Malaise [Unknown]
  - Nausea [Unknown]
  - Dizziness [Not Recovered/Not Resolved]
  - Vomiting [Unknown]
  - Decreased immune responsiveness [Unknown]
  - Feeling drunk [Unknown]
  - Pyrexia [Unknown]

NARRATIVE: CASE EVENT DATE: 20170614
